FAERS Safety Report 7598088-2 (Version None)
Quarter: 2011Q3

REPORT INFORMATION
  Report Type: 
  Country: None (occurrence: None)
  Receive Date: 20110708
  Receipt Date: 20110704
  Transmission Date: 20111222
  Serious: Yes (Hospitalization)
  Sender: FDA-Public Use
  Company Number: NZ-ABBOTT-11P-118-0836294-03

PATIENT
  Sex: Male

DRUGS (19)
  1. HUMIRA [Suspect]
     Route: 058
  2. ENTOCORT EC [Concomitant]
     Indication: CROHN'S DISEASE
     Dates: start: 20091027
  3. PREDNISONE [Concomitant]
     Dates: start: 20101224
  4. ENSURE [Concomitant]
     Indication: PRODUCT USED FOR UNKNOWN INDICATION
     Dates: start: 20091027
  5. HUMIRA [Suspect]
     Indication: CROHN'S DISEASE
     Dosage: BASELINE
     Route: 058
     Dates: start: 20091009, end: 20091009
  6. HUMIRA [Suspect]
  7. METHADONE HCL [Concomitant]
     Indication: ABDOMINAL PAIN
     Dosage: 15-20 MG
     Dates: start: 20091027, end: 20101219
  8. ACETAMINOPHEN [Concomitant]
     Indication: ABDOMINAL PAIN
     Dates: start: 20091027
  9. PREDNISONE [Concomitant]
     Indication: RESPIRATORY TRACT OEDEMA
     Dates: start: 20091102
  10. LACTULOSE [Concomitant]
     Indication: CONSTIPATION PROPHYLAXIS
     Dosage: 20-40 ML
     Dates: start: 20091029
  11. MORPHINE [Concomitant]
     Indication: ABDOMINAL PAIN
     Dosage: 10-20 MG
     Dates: start: 20091030
  12. CATAPRES [Concomitant]
     Indication: HYPERTENSION
     Route: 061
     Dates: start: 20091027
  13. GABAPENTIN [Concomitant]
     Indication: ABDOMINAL PAIN
     Dates: start: 20091027
  14. PREDNISONE [Concomitant]
     Indication: CROHN'S DISEASE
     Dates: start: 20091027, end: 20091102
  15. ALBUTEROL [Concomitant]
     Indication: OBSTRUCTIVE AIRWAYS DISORDER
  16. FLUTICASONE PROPIONATE [Concomitant]
     Indication: RESPIRATORY TRACT OEDEMA
     Dosage: 50-100 MCG
     Dates: start: 20101223
  17. METHADONE HCL [Concomitant]
     Dates: start: 20101224
  18. PREDNISONE [Concomitant]
     Dates: start: 20100127
  19. ALBUTEROL [Concomitant]
     Indication: ASTHMA
     Dosage: 100-200 MCG
     Dates: start: 20101223

REACTIONS (2)
  - ANAEMIA [None]
  - MELAENA [None]
